FAERS Safety Report 22864220 (Version 5)
Quarter: 2023Q4

REPORT INFORMATION
  Report Type: Report from Study
  Country: US (occurrence: US)
  Receive Date: 20230825
  Receipt Date: 20231225
  Transmission Date: 20240110
  Serious: Yes (Other)
  Sender: FDA-Public Use
  Company Number: US-ACADIA PHARMACEUTICALS INC.-ACA-2023-TRF-003581

PATIENT
  Age: 19 Year
  Sex: Female
  Weight: 24 kg

DRUGS (68)
  1. DAYBUE [Suspect]
     Active Substance: TROFINETIDE
     Indication: Rett syndrome
     Dosage: 5 MILLILITER, BID VIA G-TUBE
     Dates: start: 20230808, end: 202308
  2. DAYBUE [Suspect]
     Active Substance: TROFINETIDE
     Dosage: 15 MILLILITER, BID VIA G-TUBE
     Dates: start: 20230828
  3. DAYBUE [Suspect]
     Active Substance: TROFINETIDE
     Dosage: 20 MILLILITER, BID VIA G-TUBE
     Dates: start: 20230904
  4. DAYBUE [Suspect]
     Active Substance: TROFINETIDE
     Dosage: 25 MILLILITER, BID VIA G-TUBE
     Dates: start: 20230911
  5. DAYBUE [Suspect]
     Active Substance: TROFINETIDE
     Dosage: 35 MILLILITER, BID VIA G-TUBE
  6. DAYBUE [Suspect]
     Active Substance: TROFINETIDE
     Dosage: 40 MILLILITER, BID VIA G-TUBE
  7. DAYBUE [Suspect]
     Active Substance: TROFINETIDE
     Dosage: 36 MILLILITER, BID VIA G-TUBE
  8. ZONISAMIDE [Concomitant]
     Active Substance: ZONISAMIDE
     Indication: Epilepsy
     Dosage: 50 MILLIGRAM, 1 ML AM, 7 ML PM, G TUBE
  9. KEPPRA [Concomitant]
     Active Substance: LEVETIRACETAM
     Indication: Seizure
     Dosage: 100 MG/ML;  15 ML, AM AND PM VIA G TUBE
  10. KEPPRA [Concomitant]
     Active Substance: LEVETIRACETAM
     Dosage: 1500 MG, BID
  11. VALPROIC ACID [Concomitant]
     Active Substance: VALPROIC ACID
     Indication: Seizure
     Dosage: 250MG/5ML; 5 ML, AM AND PM VIA G TUBE
  12. XCOPRI [Concomitant]
     Active Substance: CENOBAMATE
     Indication: Seizure
     Dosage: 87.5 MG, PM, VIA G TUBE
  13. XCOPRI [Concomitant]
     Active Substance: CENOBAMATE
     Dosage: 37.5 MG, ONCE EVERY NIGHT AT BEDTIME, COMBINE WITH 50 MG TABLET FOR TOTAL DOSE 87.5 MG
  14. XCOPRI [Concomitant]
     Active Substance: CENOBAMATE
     Dosage: 100 MILLIGRAM, ONCE EVERY NIGHT AT BEDTIME
     Route: 048
  15. ACETAZOLAMIDE [Concomitant]
     Active Substance: ACETAZOLAMIDE
     Indication: Seizure
     Dosage: 250 MILLIGRAM, AM AND PM, VIA G TUBE
  16. MAGNESIUM OXIDE [Concomitant]
     Active Substance: MAGNESIUM OXIDE
     Indication: Vitamin supplementation
     Dosage: 500 MILLIGRAM, 1 TABLET, AM AND PM
     Route: 048
  17. MAGNESIUM OXIDE [Concomitant]
     Active Substance: MAGNESIUM OXIDE
     Dosage: 500 MILLIGRAM, 1 TABLET INTO GASTRIC TUBE TWICE DAILY
  18. LEVOCARNITINE [Concomitant]
     Active Substance: LEVOCARNITINE
     Indication: Rett syndrome
     Dosage: 7 ML, AM AND PM, VIA G TUBE
  19. BENEFIBER [WHEAT DEXTRIN] [Concomitant]
     Indication: Functional gastrointestinal disorder
     Dosage: 17 GRAM, 1 SCOOP PM, VIA G TUBE
  20. GLYCOPYRROLATE [Concomitant]
     Active Substance: GLYCOPYRROLATE
     Indication: Drooling
     Dosage: 0.05 MG, AS NEEDED VIA G TUBE
  21. GLYCOPYRROLATE [Concomitant]
     Active Substance: GLYCOPYRROLATE
     Dosage: 2 MILLIGRAM, TAKE 1 TABLET VIA GTUBE TWICE A DAY
     Route: 048
  22. PEPCID [Concomitant]
     Active Substance: FAMOTIDINE
     Indication: Facial spasm
     Dosage: 5 ML, AS NEEDED, VIA G TUBE
  23. PEPCID [Concomitant]
     Active Substance: FAMOTIDINE
     Dosage: 20 MILLIGRAM, PLACE 1 TABLET INTO THE GASTRIC TUBE ONCE EVERY MORNING
  24. SINGULAIR [Concomitant]
     Active Substance: MONTELUKAST SODIUM
     Indication: Hypersensitivity
     Dosage: 5 MILLIGRAM, CHEWABLE, AS NEEDED
  25. SINGULAIR [Concomitant]
     Active Substance: MONTELUKAST SODIUM
     Indication: Seasonal allergy
  26. XULANE [Concomitant]
     Active Substance: ETHINYL ESTRADIOL\NORELGESTROMIN
     Indication: Menstrual disorder
     Dosage: 1 PATCH ON SKIN, EVERY 7 DAYS
     Route: 061
  27. VITAMIN D3 [Concomitant]
     Active Substance: CHOLECALCIFEROL
     Indication: Vitamin supplementation
     Dosage: 2000 MG, 1 TABLET, AM, G TUBE
  28. TUMS [Concomitant]
     Active Substance: CALCIUM CARBONATE
     Indication: Vitamin supplementation
     Dosage: 750 MG, 1 TO 2 TABLET, AM, VIA G TUBE, ONCE DAILY
  29. ONDANSETRON [Concomitant]
     Active Substance: ONDANSETRON
     Indication: Nausea
     Dosage: 4 MILLIGRAM, AS NEEDED, VIA G TUBE
  30. VITAMIN C [Concomitant]
     Active Substance: ASCORBIC ACID
     Indication: Vitamin supplementation
     Dosage: 1000 MG, 1 TABLET, AM, G TUBE
  31. CLONAZEPAM [Concomitant]
     Active Substance: CLONAZEPAM
     Dosage: 0.25 MG, 1 TABLET,  AS NEEDED VIA G TUBE
  32. NAYZILAM [Concomitant]
     Active Substance: MIDAZOLAM
     Indication: Seizure
     Dosage: 5 MILLIGRAM, 1 SPRAY INTO THE NOSE AS NEEDED, 1 SPRAY IN ONE NOSTRIL, MAY USE ONE ADDITIONAL SPRAY I
     Route: 045
  33. TYLENOL [Concomitant]
     Active Substance: ACETAMINOPHEN
     Indication: Pain
     Dosage: 180 MG/ML, PLACE 20.3 ML INTO THE PEG TUBE EVERY 6 HOURS
     Route: 048
  34. TYLENOL [Concomitant]
     Active Substance: ACETAMINOPHEN
     Indication: Pyrexia
  35. DIAMOX SEQUELS [Concomitant]
     Active Substance: ACETAZOLAMIDE
     Dosage: 250 MILLIGRAM, TAKE 1/2 TABLET IN EVENING 1 WEEK PRIOR TO MENSES AND 3 DAYS INTO MENSTRUAL CYCLE THE
     Route: 048
  36. VITAMIN C [Concomitant]
     Active Substance: ASCORBIC ACID
     Dosage: 1000 MG, PLACE 1 TABLET INTO THE GASTRIC (G) TUBE ONCE DAILY
  37. MEDICAL FOOD [Concomitant]
     Active Substance: MEDICAL FOOD
     Route: 048
  38. VITAMIN D3 [Concomitant]
     Active Substance: CHOLECALCIFEROL
     Indication: Vitamin supplementation
     Dosage: 50 MCG, PLACE 1 CAPSULE INTO G TUBE ONCE DAILY
     Route: 048
  39. KLONOPIN [Concomitant]
     Active Substance: CLONAZEPAM
     Indication: Seizure
     Dosage: 0.25 MG, TAKE 1 TABLET BY MOUTH MAY REPEAT WITH ONE TABLET IF NEEDED 20 MINUTES LATER
  40. DIASTAT [Concomitant]
     Active Substance: DIAZEPAM
     Dosage: 10 MILLIGRAM, ADMINISTER 1 SYRINGE RECTALLY FOR PROLONGED SEIZURE LASTING 5 MINUTES IN DURATION OR F
  41. IMODIUM [Concomitant]
     Active Substance: LOPERAMIDE HYDROCHLORIDE
     Indication: Diarrhoea
     Dosage: 1 MG/7.5 ML, PLACE 7.5 ML INTO THE PEG TUBE TWICE DAILY
  42. BACTROBAN [Concomitant]
     Active Substance: MUPIROCIN CALCIUM
     Dosage: 2%, APPLY TO AFFECTED AREA 3 TIMES DAILY
  43. ZOFRAN [Concomitant]
     Active Substance: ONDANSETRON HYDROCHLORIDE
     Indication: Nausea
     Dosage: 4 MILLIGRAM, TAKE 1 TABLET VA G TUBE EVERY 6 HOURS IF NEEDED
     Route: 048
  44. ZOFRAN [Concomitant]
     Active Substance: ONDANSETRON HYDROCHLORIDE
     Indication: Vomiting
  45. KENALOG [Concomitant]
     Active Substance: TRIAMCINOLONE ACETONIDE
     Indication: Pruritus
     Dosage: 1%, APPLY 1 EACH TO AFFECTED AREA TWICE DAILY AS NEEDED
  46. DULCOLAX (BISACODYL) [Concomitant]
     Active Substance: BISACODYL
     Dosage: 10 MILLIGRAM, 1 SUPPOSITORY INTO THE RECTUM ONCE EVERY NIGHT AT BEDTIME, PATIENT TAKING DIFFERNETLY
  47. COLACE [Concomitant]
     Active Substance: DOCUSATE SODIUM
     Dosage: 50 MG/5 ML, PLACE 10 ML INTO THE PEG TUBE ONCE DAILY
  48. CEPHULAC [Concomitant]
     Active Substance: LACTULOSE
     Indication: Constipation
     Dosage: 10 G/15 ML, TAKE 15 ML BY MOUTH TWICE DAILY AS NEEDED
     Route: 048
  49. DIETARY SUPPLEMENT [Concomitant]
     Active Substance: DIETARY SUPPLEMENT
     Dosage: PLACE 1,065 ML INTO PEG TUBE ONCE DAILY FOR 90 DAYSVOLUME; 1065 MLTOTAL OF 3 POUCHESMETHOD: 200 ML 3
  50. ZONEGRAN [Concomitant]
     Active Substance: ZONISAMIDE
     Dosage: (50 MG/ML) 50 TUG AM AND 350 MG AT NIGHT
  51. CARNITOR [Concomitant]
     Active Substance: LEVOCARNITINE
     Dosage: (100 MG/ML) 700 MG BID
  52. DEPAKENE [Concomitant]
     Active Substance: VALPROIC ACID
     Dosage: (250 LAG/.S ML) 250 MG BID
  53. TRILEPTAL [Concomitant]
     Active Substance: OXCARBAZEPINE
  54. PHENYTOIN [Concomitant]
     Active Substance: PHENYTOIN
  55. BANZEL [Concomitant]
     Active Substance: RUFINAMIDE
  56. FELBAMATE [Concomitant]
     Active Substance: FELBAMATE
  57. TOPAMAX [Concomitant]
     Active Substance: TOPIRAMATE
  58. CLOBAZAM [Concomitant]
     Active Substance: CLOBAZAM
  59. ONFI [Concomitant]
     Active Substance: CLOBAZAM
  60. LAMICTAL [Concomitant]
     Active Substance: LAMOTRIGINE
  61. FYCOMPA [Concomitant]
     Active Substance: PERAMPANEL
  62. SABRIL [Concomitant]
     Active Substance: VIGABATRIN
  63. PREDNISONE [Concomitant]
     Active Substance: PREDNISONE
  64. BUSPAR [Concomitant]
     Active Substance: BUSPIRONE HYDROCHLORIDE
  65. PROZAC [Concomitant]
     Active Substance: FLUOXETINE HYDROCHLORIDE
  66. VIGABATRIN [Concomitant]
     Active Substance: VIGABATRIN
  67. PHENOBARBITAL [Concomitant]
     Active Substance: PHENOBARBITAL
  68. ROBINUL [Concomitant]
     Active Substance: GLYCOPYRROLATE
     Dosage: 2 MILLIGRAM, TWICE A DAY (PARENT GIVING 2 MG ONCE A DAY CURRENTLY)

REACTIONS (7)
  - Seizure [Not Recovered/Not Resolved]
  - Hypersomnia [Not Recovered/Not Resolved]
  - Hypersomnia [Not Recovered/Not Resolved]
  - Underdose [Not Recovered/Not Resolved]
  - Abdominal discomfort [Unknown]
  - Nausea [Recovered/Resolved]
  - Diarrhoea [Not Recovered/Not Resolved]

NARRATIVE: CASE EVENT DATE: 20230808
